FAERS Safety Report 6828720-X (Version None)
Quarter: 2010Q3

REPORT INFORMATION
  Report Type: 
  Country: None (occurrence: None)
  Receive Date: 20100709
  Receipt Date: 20070217
  Transmission Date: 20110219
  Serious: No
  Sender: FDA-Public Use
  Company Number: US-PFIZER INC-2007013495

PATIENT
  Age: 50 Year
  Sex: Female
  Weight: 113.4 kg

DRUGS (7)
  1. CHANTIX [Suspect]
     Indication: SMOKING CESSATION THERAPY
     Dates: start: 20070101
  2. ADVAIR DISKUS 100/50 [Concomitant]
     Indication: ASTHMA
  3. SPIRIVA [Concomitant]
     Indication: ASTHMA
  4. QVAR 40 [Concomitant]
     Indication: ASTHMA
  5. LOVASTATIN [Concomitant]
     Indication: ASTHMA
  6. ALLEGRA D 24 HOUR [Concomitant]
     Indication: ASTHMA
  7. VALSARTAN [Concomitant]
     Indication: HYPERTENSION

REACTIONS (2)
  - DRUG WITHDRAWAL SYNDROME [None]
  - INFLUENZA LIKE ILLNESS [None]
